FAERS Safety Report 15607752 (Version 1)
Quarter: 2018Q4

REPORT INFORMATION
  Report Type: Spontaneous
  Country: FR (occurrence: FR)
  Receive Date: 20181112
  Receipt Date: 20181112
  Transmission Date: 20190205
  Serious: Yes (Death)
  Sender: FDA-Public Use
  Company Number: FR-009507513-1811FRA000917

PATIENT
  Age: 2 Year
  Sex: Female
  Weight: 10.4 kg

DRUGS (3)
  1. CANCIDAS [Suspect]
     Active Substance: CASPOFUNGIN ACETATE
     Indication: INFECTION
     Dosage: 35 MILLIGRAM, QD
     Route: 042
     Dates: start: 20180726, end: 20180731
  2. BUSILVEX [Suspect]
     Active Substance: BUSULFAN
     Indication: BONE MARROW TRANSPLANT
     Dosage: 24.96 MILLIGRAM, QD
     Route: 042
     Dates: start: 20180710, end: 20180715
  3. ALKERAN [Suspect]
     Active Substance: MELPHALAN
     Indication: BONE MARROW TRANSPLANT
     Dosage: 40 MILLIGRAM, QD
     Route: 042
     Dates: start: 20180716, end: 20180716

REACTIONS (1)
  - Venoocclusive liver disease [Fatal]

NARRATIVE: CASE EVENT DATE: 20180731
